FAERS Safety Report 9379629 (Version 2)
Quarter: 2013Q3

REPORT INFORMATION
  Report Type: Spontaneous
  Country: DE (occurrence: DE)
  Receive Date: 20130702
  Receipt Date: 20130712
  Transmission Date: 20140515
  Serious: Yes (Hospitalization)
  Sender: FDA-Public Use
  Company Number: DE-TEVA-415530GER

PATIENT
  Age: 28 Year
  Sex: Female
  Weight: 168 kg

DRUGS (1)
  1. SALBUTAMOL-RATIOPHARM N DOSIER-AEROSOL [Suspect]
     Indication: ASTHMA
     Route: 055

REACTIONS (2)
  - Sensation of foreign body [Recovered/Resolved]
  - Oropharyngeal pain [Recovered/Resolved]
